FAERS Safety Report 11272604 (Version 4)
Quarter: 2018Q4

REPORT INFORMATION
  Report Type: Report from Study
  Country: US (occurrence: US)
  Receive Date: 20150715
  Receipt Date: 20181113
  Transmission Date: 20190204
  Serious: Yes (Death, Other)
  Sender: FDA-Public Use
  Company Number: US-ROCHE-1607777

PATIENT
  Age: 72 Year
  Sex: Female
  Weight: 74 kg

DRUGS (13)
  1. HYDROCHLOROTHIAZIDE. [Concomitant]
     Active Substance: HYDROCHLOROTHIAZIDE
  2. LIPITOR [Concomitant]
     Active Substance: ATORVASTATIN CALCIUM
  3. MELATONIN [Concomitant]
     Active Substance: MELATONIN
  4. MILK THISTLE [Concomitant]
     Active Substance: DIETARY SUPPLEMENT\HERBALS\MILK THISTLE
  5. VITAMIN B12 [Concomitant]
     Active Substance: CYANOCOBALAMIN
  6. IPILIMUMAB [Suspect]
     Active Substance: IPILIMUMAB
     Indication: MALIGNANT MELANOMA
     Dosage: LAST DOSE PRIOR TO SAE ON 05/MAY/2015 (CYCLE 4, DAY1)
     Route: 042
     Dates: start: 20150303
  7. HEMP OIL [Concomitant]
     Active Substance: CANNABIS SATIVA SEED OIL
  8. BEVACIZUMAB. [Suspect]
     Active Substance: BEVACIZUMAB
     Indication: MALIGNANT MELANOMA
     Dosage: CYCEL=21?LAST DOSE PRIOR TO SAE ON 26/MAY/2015 (CYCLE 5, DAY1)
     Route: 042
     Dates: start: 20150303
  9. LISINOPRIL. [Concomitant]
     Active Substance: LISINOPRIL
  10. VITAMIN C [Concomitant]
     Active Substance: ASCORBIC ACID
  11. ASPIR 81 [Concomitant]
  12. NORVASC [Concomitant]
     Active Substance: AMLODIPINE BESYLATE
  13. CARVEDILOL. [Concomitant]
     Active Substance: CARVEDILOL

REACTIONS (2)
  - Hypertension [Unknown]
  - Sudden death [Fatal]

NARRATIVE: CASE EVENT DATE: 20150616
